FAERS Safety Report 11399208 (Version 5)
Quarter: 2016Q3

REPORT INFORMATION
  Report Type: Spontaneous
  Country: DE (occurrence: DE)
  Receive Date: 20150820
  Receipt Date: 20160916
  Transmission Date: 20161109
  Serious: Yes (Disabling, Other)
  Sender: FDA-Public Use
  Company Number: DE-BEH-2015053154

PATIENT
  Age: 51 Year
  Sex: Female
  Weight: 90 kg

DRUGS (25)
  1. GAMUNEX [Suspect]
     Active Substance: HUMAN IMMUNOGLOBULIN G
     Dosage: 10% SOLUTION, 2 BOTTLES A 200 ML
     Route: 042
     Dates: start: 20141218, end: 20141218
  2. GAMUNEX [Suspect]
     Active Substance: HUMAN IMMUNOGLOBULIN G
     Dosage: 10% SOLUTION, 2 BOTTLES A 200 ML
     Route: 042
     Dates: start: 20150125, end: 20150125
  3. GAMUNEX [Suspect]
     Active Substance: HUMAN IMMUNOGLOBULIN G
     Dosage: 10% SOLUTION, 2 BOTTLES A 200 ML
     Route: 042
     Dates: start: 20150605, end: 20150605
  4. GAMUNEX [Suspect]
     Active Substance: HUMAN IMMUNOGLOBULIN G
     Dosage: 10% SOLUTION, 1 BOTTLE A 200 ML
     Route: 042
     Dates: start: 20150606, end: 20150606
  5. AMITRYPTILLIN [Concomitant]
     Indication: TRIGEMINAL NEURALGIA
     Route: 065
  6. PREGABALIN. [Concomitant]
     Active Substance: PREGABALIN
     Indication: TRIGEMINAL NEURALGIA
     Route: 065
  7. PRIVIGEN [Suspect]
     Active Substance: HUMAN IMMUNOGLOBULIN G
     Dosage: 10% SOLUTION, 4 BOTTLES A 10 G, 2ND ADMINISTRATION APPROX. 14:00, 3RD ADMINISTRATION APPROX. 18:30
     Route: 042
     Dates: start: 20140719, end: 20140719
  8. GAMUNEX [Suspect]
     Active Substance: HUMAN IMMUNOGLOBULIN G
     Dosage: 10% SOLUTION, 3 BOTTLES A 200 ML, 1 BOTTLE VIA INFUSOMAT OVER 4 HOURS
     Route: 042
     Dates: start: 20141019, end: 20141019
  9. GAMUNEX [Suspect]
     Active Substance: HUMAN IMMUNOGLOBULIN G
     Dosage: 10% SOLUTION, 2 BOTTLES A 200 ML
     Route: 042
     Dates: start: 20150509, end: 20150509
  10. GAMUNEX [Suspect]
     Active Substance: HUMAN IMMUNOGLOBULIN G
     Dosage: 10% SOLUTION, 2 BOTTLES A 200 ML
     Route: 042
     Dates: start: 20150704, end: 20150704
  11. GAMUNEX [Suspect]
     Active Substance: HUMAN IMMUNOGLOBULIN G
     Dosage: 10% SOLUTION, 2 BOTTLES A 200 ML
     Route: 042
     Dates: start: 20150324, end: 20150324
  12. GAMUNEX [Suspect]
     Active Substance: HUMAN IMMUNOGLOBULIN G
     Dosage: 10% SOLUTION, 2 BOTTLES A 200 ML
     Route: 042
     Dates: start: 20150511, end: 20150511
  13. GAMUNEX [Suspect]
     Active Substance: HUMAN IMMUNOGLOBULIN G
     Dosage: 10% SOLUTION, 2 BOTTLES A 200 ML
     Route: 042
     Dates: start: 20150123, end: 20150123
  14. GAMUNEX [Suspect]
     Active Substance: HUMAN IMMUNOGLOBULIN G
     Dosage: 10% SOLUTION, 2 BOTTLES A 200 ML
     Route: 042
     Dates: start: 20150706, end: 20150706
  15. GAMUNEX [Suspect]
     Active Substance: HUMAN IMMUNOGLOBULIN G
     Dosage: 10% SOLUTION, 2 BOTTLES A 200 ML
     Route: 042
     Dates: start: 20150124, end: 20150124
  16. GAMUNEX [Suspect]
     Active Substance: HUMAN IMMUNOGLOBULIN G
     Dosage: 10% SOLUTION, 2 BOTTLES A 200 ML
     Route: 042
     Dates: start: 20150321, end: 20150321
  17. GAMUNEX [Suspect]
     Active Substance: HUMAN IMMUNOGLOBULIN G
     Dosage: 10% SOLUTION, 2 BOTTLES A 200 ML
     Route: 042
     Dates: start: 20150512, end: 20150512
  18. GAMUNEX [Suspect]
     Active Substance: HUMAN IMMUNOGLOBULIN G
     Dosage: 10% SOLUTION, 2 BOTTLES A 200 ML
     Route: 042
     Dates: start: 20150702, end: 20150702
  19. GAMUNEX [Suspect]
     Active Substance: HUMAN IMMUNOGLOBULIN G
     Dosage: 10% SOLUTION, 1 BOTTLE A 200 ML
     Route: 042
     Dates: start: 20150705, end: 20150705
  20. PRIVIGEN [Suspect]
     Active Substance: HUMAN IMMUNOGLOBULIN G
     Indication: CHRONIC INFLAMMATORY DEMYELINATING POLYRADICULONEUROPATHY
     Dosage: 10% SOLUTION, 4 BOTTLES A 10 G
     Route: 042
     Dates: start: 20140717, end: 20140717
  21. PRIVIGEN [Suspect]
     Active Substance: HUMAN IMMUNOGLOBULIN G
     Dosage: 10% SOLUTION, 3 BOTTLES A 10 G
     Route: 042
     Dates: start: 20140718, end: 20140718
  22. GAMUNEX [Suspect]
     Active Substance: HUMAN IMMUNOGLOBULIN G
     Indication: CHRONIC INFLAMMATORY DEMYELINATING POLYRADICULONEUROPATHY
     Dosage: 10% SOLUTION, 2 BOTTLES A 200 ML, START DATE: AUG-2014 ACCORDING TO FUP 2 REPORTING
     Route: 042
     Dates: start: 20140723, end: 20140723
  23. GAMUNEX [Suspect]
     Active Substance: HUMAN IMMUNOGLOBULIN G
     Dosage: 10% SOLUTION, 3 BOTTLES A 200 ML, 1 BOTTLE VIA INFUSOMAT OVER 4 HOURS
     Route: 042
     Dates: start: 20141018, end: 20141018
  24. PROTHROMPLEX NF [Suspect]
     Active Substance: ANTITHROMBIN III HUMAN\COAGULATION FACTOR IX HUMAN\COAGULATION FACTOR VII HUMAN\COAGULATION FACTOR X HUMAN\PROTEIN C\PROTEIN S HUMAN\PROTHROMBIN
     Dosage: NF 600, LOT NO. VNP5N0007
     Route: 065
     Dates: start: 20141018, end: 20141018
  25. GAMUNEX [Suspect]
     Active Substance: HUMAN IMMUNOGLOBULIN G
     Dosage: 10% SOLUTION, 2 BOTTLES A 200 ML
     Route: 042
     Dates: start: 20140724, end: 20140724

REACTIONS (17)
  - Hypersensitivity [Recovering/Resolving]
  - Vertigo [Recovering/Resolving]
  - Nausea [Recovering/Resolving]
  - Anaphylactic reaction [Recovering/Resolving]
  - Suspected transmission of an infectious agent via product [Not Recovered/Not Resolved]
  - Pruritus [Recovering/Resolving]
  - Urticaria [Recovering/Resolving]
  - Hepatitis C antibody positive [Not Recovered/Not Resolved]
  - Dizziness [Recovering/Resolving]
  - Flushing [Recovering/Resolving]
  - Angioedema [Recovering/Resolving]
  - Dermatitis [Recovering/Resolving]
  - Rash [Recovering/Resolving]
  - Swelling face [Recovering/Resolving]
  - Hypotension [Recovering/Resolving]
  - Dyspnoea [Recovering/Resolving]
  - Asthma [Recovering/Resolving]

NARRATIVE: CASE EVENT DATE: 201407
